FAERS Safety Report 17407320 (Version 1)
Quarter: 2020Q1

REPORT INFORMATION
  Report Type: Report from Study
  Country: FR (occurrence: FR)
  Receive Date: 20200212
  Receipt Date: 20200212
  Transmission Date: 20200409
  Serious: Yes (Other)
  Sender: FDA-Public Use
  Company Number: FR-TEVA-2020-FR-1183041

PATIENT
  Age: 12 Year
  Sex: Male

DRUGS (3)
  1. ALL-TRANS-RETINOIC ACID [Suspect]
     Active Substance: TRETINOIN
     Indication: ACUTE PROMYELOCYTIC LEUKAEMIA
     Dosage: 25 MG/M2 DAILY;
     Route: 048
  2. DEXAMETHASONE. [Concomitant]
     Active Substance: DEXAMETHASONE
     Indication: PROPHYLAXIS
     Route: 065
  3. ARSENIC TRIOXIDE. [Suspect]
     Active Substance: ARSENIC TRIOXIDE
     Indication: ACUTE PROMYELOCYTIC LEUKAEMIA
     Dosage: .15 MG/KG DAILY;
     Route: 042

REACTIONS (3)
  - Idiopathic intracranial hypertension [Unknown]
  - Differentiation syndrome [Unknown]
  - Leukocytosis [Unknown]
